FAERS Safety Report 24150771 (Version 3)
Quarter: 2024Q3

REPORT INFORMATION
  Report Type: Report from Study
  Country: US (occurrence: US)
  Receive Date: 20240730
  Receipt Date: 20240916
  Transmission Date: 20241016
  Serious: Yes (Other)
  Sender: ACADIA PHARMACEUTICALS
  Company Number: US-ACADIA PHARMACEUTICALS INC.-ACA-2024-TRF-002965

PATIENT
  Age: 4 Year
  Sex: Female

DRUGS (6)
  1. DAYBUE [Suspect]
     Active Substance: TROFINETIDE
     Indication: Rett syndrome
     Dosage: 5 MILLILITER, BID
     Route: 048
     Dates: start: 20240623
  2. DAYBUE [Suspect]
     Active Substance: TROFINETIDE
     Dosage: 15 MILLILITER, BID
     Route: 048
  3. DAYBUE [Suspect]
     Active Substance: TROFINETIDE
     Dosage: 30 MILLILITER, BID
     Route: 048
  4. KEPPRA [Suspect]
     Active Substance: LEVETIRACETAM
     Indication: Seizure
     Dosage: 100MG/1ML (1.5ML BID)
     Dates: start: 20240718
  5. MELATONIN [Concomitant]
     Active Substance: MELATONIN
     Dosage: 1 MILLIGRAM FOR 8 DAYS
  6. ENBREL [Concomitant]
     Active Substance: ETANERCEPT

REACTIONS (7)
  - Condition aggravated [Recovered/Resolved]
  - Seizure [Recovered/Resolved]
  - Irritability [Unknown]
  - Underdose [Not Recovered/Not Resolved]
  - Abdominal discomfort [Unknown]
  - Prescribed underdose [Unknown]
  - Agitation [Recovered/Resolved]

NARRATIVE: CASE EVENT DATE: 20240718
